FAERS Safety Report 8374732-7 (Version None)
Quarter: 2012Q2

REPORT INFORMATION
  Report Type: 
  Country: None (occurrence: None)
  Receive Date: 20120521
  Receipt Date: 20120510
  Transmission Date: 20120825
  Serious: Yes (Hospitalization)
  Sender: FDA-Public Use
  Company Number: US-ACTELION-A-US2012-65706

PATIENT

DRUGS (1)
  1. TRACLEER [Suspect]
     Indication: PULMONARY ARTERIAL HYPERTENSION
     Dosage: UNK
     Route: 048
     Dates: start: 20111201

REACTIONS (5)
  - CONDITION AGGRAVATED [None]
  - HEADACHE [None]
  - BLOOD PRESSURE DECREASED [None]
  - ACTIVITIES OF DAILY LIVING IMPAIRED [None]
  - SARCOIDOSIS [None]
